FAERS Safety Report 23389626 (Version 1)
Quarter: 2024Q1

REPORT INFORMATION
  Report Type: Spontaneous
  Country: US (occurrence: US)
  Receive Date: 20240111
  Receipt Date: 20240111
  Transmission Date: 20240409
  Serious: Yes (Hospitalization, Other)
  Sender: FDA-Public Use
  Company Number: US-AMGEN-USASP2024001814

PATIENT
  Age: 53 Year
  Sex: Male

DRUGS (3)
  1. INFLIXIMAB [Suspect]
     Active Substance: INFLIXIMAB
     Indication: Colitis ulcerative
     Dosage: UNK
     Route: 065
  2. ADALIMUMAB [Concomitant]
     Active Substance: ADALIMUMAB\ISOPROPYL ALCOHOL
     Indication: Colitis ulcerative
  3. MIRIKIZUMAB [Concomitant]
     Active Substance: MIRIKIZUMAB
     Indication: Colitis ulcerative

REACTIONS (4)
  - Colitis ulcerative [Unknown]
  - Microcytic anaemia [Unknown]
  - Neuroendocrine carcinoma metastatic [Unknown]
  - Therapy non-responder [Unknown]
